FAERS Safety Report 7603346-9 (Version None)
Quarter: 2011Q3

REPORT INFORMATION
  Report Type: 
  Country: None (occurrence: None)
  Receive Date: 20110712
  Receipt Date: 20110630
  Transmission Date: 20111222
  Serious: Yes (Other)
  Sender: FDA-Public Use
  Company Number: PHHY2011DE58188

PATIENT
  Age: 82 Year
  Sex: Female

DRUGS (3)
  1. AREDIA [Suspect]
     Dosage: UNK
     Route: 042
     Dates: start: 20010701, end: 20040204
  2. CORTISONE ACETATE [Concomitant]
  3. ZOMETA [Suspect]
     Dosage: UNK
     Dates: start: 20040204, end: 20090901

REACTIONS (1)
  - OSTEONECROSIS OF JAW [None]
